FAERS Safety Report 9167395 (Version 1)
Quarter: 2013Q1

REPORT INFORMATION
  Report Type: Report from Study
  Country: CA (occurrence: CA)
  Receive Date: 20130318
  Receipt Date: 20130318
  Transmission Date: 20140127
  Serious: Yes (Hospitalization)
  Sender: FDA-Public Use
  Company Number: CA-JNJFOC-20130302925

PATIENT
  Sex: Male
  Weight: 120 kg

DRUGS (1)
  1. REMICADE [Suspect]
     Indication: PRODUCT USED FOR UNKNOWN INDICATION
     Route: 042
     Dates: start: 20100712, end: 20130123

REACTIONS (1)
  - Laryngitis [Unknown]
